FAERS Safety Report 7733732-8 (Version None)
Quarter: 2011Q3

REPORT INFORMATION
  Report Type: 
  Country: None (occurrence: None)
  Receive Date: 20110901
  Receipt Date: 20110822
  Transmission Date: 20111222
  Serious: Yes (Death)
  Sender: FDA-Public Use
  Company Number: 2011BN000076

PATIENT

DRUGS (4)
  1. CLOFARABINE [Suspect]
     Indication: BONE MARROW CONDITIONING REGIMEN
     Dosage: 40 MG/ M**2;QD; IV
     Route: 042
  2. TACROLIMUS [Concomitant]
  3. MELPHALAN HYDROCHLORIDE [Suspect]
     Indication: BONE MARROW CONDITIONING REGIMEN
     Dosage: 100 MG/ M**2; 1X; IV
     Route: 042
  4. SIROLIMUS [Concomitant]

REACTIONS (1)
  - DEATH [None]
